FAERS Safety Report 23175029 (Version 2)
Quarter: 2023Q4

REPORT INFORMATION
  Report Type: Spontaneous
  Country: JP (occurrence: JP)
  Receive Date: 20231112
  Receipt Date: 20231201
  Transmission Date: 20240109
  Serious: Yes (Life-Threatening, Hospitalization, Disabling, Congenital Anomaly, Other)
  Sender: FDA-Public Use
  Company Number: JP-TAKEDA-2023TJP014823

PATIENT
  Age: 11 Month
  Sex: Male
  Weight: 5.4 kg

DRUGS (1)
  1. VPRIV [Suspect]
     Active Substance: VELAGLUCERASE ALFA
     Indication: Gaucher^s disease
     Dosage: 1 DOSAGE FORM, Q2WEEKS
     Route: 041
     Dates: start: 20230718

REACTIONS (2)
  - Gaucher^s disease [Not Recovered/Not Resolved]
  - Product administered to patient of inappropriate age [Unknown]
